FAERS Safety Report 11239023 (Version 1)
Quarter: 2015Q3

REPORT INFORMATION
  Report Type: Report from Study
  Country: US (occurrence: US)
  Receive Date: 20150706
  Receipt Date: 20150706
  Transmission Date: 20151125
  Serious: Yes (Hospitalization)
  Sender: FDA-Public Use
  Company Number: US-ABBVIE-15K-163-1360951-00

PATIENT
  Age: 12 Year
  Sex: Male
  Weight: 39.5 kg

DRUGS (12)
  1. IRON [Concomitant]
     Active Substance: IRON
     Indication: PRODUCT USED FOR UNKNOWN INDICATION
  2. HUMIRA [Suspect]
     Active Substance: ADALIMUMAB
     Route: 058
     Dates: start: 20150109, end: 201503
  3. HUMIRA [Suspect]
     Active Substance: ADALIMUMAB
     Indication: CROHN^S DISEASE
     Route: 058
     Dates: start: 20141110, end: 20141110
  4. MULTIVITAMIN [Concomitant]
     Active Substance: VITAMINS
     Indication: PRODUCT USED FOR UNKNOWN INDICATION
  5. CALCIUM [Concomitant]
     Active Substance: CALCIUM
     Indication: PRODUCT USED FOR UNKNOWN INDICATION
  6. HUMIRA [Suspect]
     Active Substance: ADALIMUMAB
     Indication: CROHN^S DISEASE
     Route: 058
     Dates: start: 20141209, end: 20141223
  7. HUMIRA [Suspect]
     Active Substance: ADALIMUMAB
     Route: 058
     Dates: start: 201501
  8. CALCIUM [Concomitant]
     Active Substance: CALCIUM
     Indication: VITAMIN SUPPLEMENTATION
  9. MULTIVITAMINES WITH IRON [Concomitant]
     Indication: VITAMIN SUPPLEMENTATION
  10. VITAMIN D [Concomitant]
     Active Substance: CHOLECALCIFEROL
     Indication: VITAMIN SUPPLEMENTATION
  11. HUMIRA [Suspect]
     Active Substance: ADALIMUMAB
     Route: 058
     Dates: start: 20141125, end: 20141125
  12. HUMIRA [Suspect]
     Active Substance: ADALIMUMAB
     Route: 058
     Dates: start: 20150320

REACTIONS (22)
  - Alanine aminotransferase increased [Unknown]
  - Nasopharyngitis [Recovering/Resolving]
  - Injection site pain [Not Recovered/Not Resolved]
  - Splenomegaly [Unknown]
  - Faecal calprotectin decreased [Unknown]
  - Haematochezia [Unknown]
  - Ulcer [Unknown]
  - Hepatitis [Unknown]
  - Pyrexia [Unknown]
  - Drug ineffective [Unknown]
  - Aspartate aminotransferase increased [Unknown]
  - Fatigue [Recovering/Resolving]
  - Inflammation [Unknown]
  - Faecal calprotectin increased [Unknown]
  - Haematochezia [Unknown]
  - Haematochezia [Not Recovered/Not Resolved]
  - Epistaxis [Recovered/Resolved]
  - Hepatic steatosis [Unknown]
  - Coeliac disease [Unknown]
  - Sinus congestion [Recovering/Resolving]
  - Diarrhoea [Unknown]
  - Cyst [Unknown]

NARRATIVE: CASE EVENT DATE: 20141110
